FAERS Safety Report 9782524 (Version 3)
Quarter: 2014Q2

REPORT INFORMATION
  Report Type: Spontaneous
  Country: US (occurrence: US)
  Receive Date: 20131226
  Receipt Date: 20140422
  Transmission Date: 20141212
  Serious: Yes (Hospitalization)
  Sender: FDA-Public Use
  Company Number: US-PERRIGO-13US012891

PATIENT
  Age: 7 Year
  Sex: Female
  Weight: 29.48 kg

DRUGS (3)
  1. IBUPROFEN 20 MG/ML CHILD BERRY 897 [Suspect]
     Indication: PYREXIA
     Dosage: 250MG POSSIBLY 1-2 DOSES
     Route: 048
     Dates: start: 20131121, end: 20131121
  2. IBUPROFEN CHILD BUBBLEGUM 20 MG/ML 166 [Suspect]
     Indication: PYREXIA
     Dosage: 250MG POSSIBLY 1-2 DOSES
     Route: 048
     Dates: start: 20131121, end: 20131121
  3. TYLENOL                            /00020001/ [Concomitant]
     Indication: PYREXIA
     Dosage: UNK
     Route: 065
     Dates: start: 20131120, end: 20131121

REACTIONS (3)
  - Haematemesis [Recovered/Resolved]
  - Blood count abnormal [Recovered/Resolved]
  - Abdominal pain upper [Recovered/Resolved]
